FAERS Safety Report 9776235 (Version 1)
Quarter: 2013Q4

REPORT INFORMATION
  Report Type: Spontaneous
  Country: GR (occurrence: None)
  Receive Date: 20131218
  Receipt Date: 20131218
  Transmission Date: 20140711
  Serious: Yes (Life-Threatening, Hospitalization)
  Sender: FDA-Public Use
  Company Number: 2013/219

PATIENT
  Age: 68 Year
  Sex: Female

DRUGS (1)
  1. LEVOFLOXACIN [Suspect]
     Indication: ERYSIPELAS

REACTIONS (11)
  - Chest pain [None]
  - Dyspnoea [None]
  - Nausea [None]
  - Vomiting [None]
  - Generalised erythema [None]
  - Urticaria [None]
  - Hypersensitivity [None]
  - Eosinophilia [None]
  - Left ventricular hypertrophy [None]
  - Troponin I increased [None]
  - Coronary artery stenosis [None]
